FAERS Safety Report 5795903-X (Version None)
Quarter: 2008Q3

REPORT INFORMATION
  Report Type: 
  Country: None (occurrence: None)
  Receive Date: 20080701
  Receipt Date: 20080620
  Transmission Date: 20090109
  Serious: Yes (Other)
  Sender: FDA-Public Use
  Company Number: US-JNJFOC-20080605672

PATIENT
  Sex: Male
  Weight: 86.18 kg

DRUGS (2)
  1. REMICADE [Suspect]
     Indication: CROHN'S DISEASE
     Dosage: DOSE RECEIVED-4 VIALS
     Route: 042
  2. IMURAN [Concomitant]
     Indication: PROPHYLAXIS

REACTIONS (3)
  - ILEOSTOMY [None]
  - PAIN [None]
  - WEIGHT DECREASED [None]
